FAERS Safety Report 14065117 (Version 2)
Quarter: 2018Q2

REPORT INFORMATION
  Report Type: Spontaneous
  Country: CH (occurrence: CH)
  Receive Date: 20171009
  Receipt Date: 20180510
  Transmission Date: 20180711
  Serious: Yes (Hospitalization, Other)
  Sender: FDA-Public Use
  Company Number: CH-PFIZER INC-2017426846

PATIENT
  Age: 59 Year
  Sex: Male
  Weight: 43 kg

DRUGS (14)
  1. LYRICA [Suspect]
     Active Substance: PREGABALIN
     Dosage: 100MG, 2X/DAY, START OF ADMINISTRATION UNKNOWN.XDOSAGE DECREASED ON 14SEP2017
     Route: 048
     Dates: end: 20170918
  2. NOVORAPID [Concomitant]
     Active Substance: INSULIN ASPART
     Indication: BLOOD GLUCOSE INCREASED
     Dosage: UNK
     Route: 058
  3. INSPRA [Concomitant]
     Active Substance: EPLERENONE
     Dosage: 50MG, 1X/DAY, TO START AS SOON AS POSSIBLE
     Route: 048
     Dates: start: 201709
  4. INSULATARD HM [Concomitant]
     Active Substance: INSULIN HUMAN
     Dosage: 14 IU, 1X/DAY AT 08:00 PM
     Route: 058
  5. XIFAXAN [Concomitant]
     Active Substance: RIFAXIMIN
     Dosage: 550MG, 1X/DAY
     Route: 048
  6. CLEXANE [Concomitant]
     Active Substance: ENOXAPARIN SODIUM
     Dosage: 20MG, 1X/DAY
     Route: 058
  7. ZOLPIDEM [Concomitant]
     Active Substance: ZOLPIDEM\ZOLPIDEM TARTRATE
     Dosage: 10MG, 1X/DAY, AT BEDTIME
     Route: 048
  8. MST CONTINUS CR [Concomitant]
     Dosage: 20MG, 3X/DAY
     Route: 048
  9. ASPIRIN CARDIO [Concomitant]
     Active Substance: ASPIRIN
     Dosage: 100MG, 1X/DAY
     Route: 048
  10. LYRICA [Suspect]
     Active Substance: PREGABALIN
     Dosage: UNK
     Route: 048
     Dates: start: 20170914
  11. URISPAS [Concomitant]
     Active Substance: FLAVOXATE HYDROCHLORIDE
     Dosage: 200MG, 3X/DAY
     Route: 048
  12. CREON 40000 [Concomitant]
     Dosage: 4000 IU, 3X/DAY
     Route: 048
  13. JANUVIA [Concomitant]
     Active Substance: SITAGLIPTIN PHOSPHATE
     Dosage: 50MG, 1X/DAY
     Route: 048
  14. LYRICA [Suspect]
     Active Substance: PREGABALIN
     Indication: POLYNEUROPATHY
     Dosage: UNK
     Route: 048

REACTIONS (6)
  - Respiratory failure [Not Recovered/Not Resolved]
  - Hypercapnia [Not Recovered/Not Resolved]
  - Pulmonary hypertension [Unknown]
  - Oedema peripheral [Recovered/Resolved]
  - Cardiac failure [Recovered/Resolved]
  - Hypoxia [Not Recovered/Not Resolved]

NARRATIVE: CASE EVENT DATE: 20170826
